FAERS Safety Report 7069205-8 (Version None)
Quarter: 2010Q4

REPORT INFORMATION
  Report Type: 
  Country: None (occurrence: None)
  Receive Date: 20101028
  Receipt Date: 20101025
  Transmission Date: 20110411
  Serious: Yes (Hospitalization)
  Sender: FDA-Public Use
  Company Number: B0681033A

PATIENT
  Sex: Male
  Weight: 140 kg

DRUGS (14)
  1. SERETIDE DISKUS [Suspect]
     Indication: CHRONIC OBSTRUCTIVE PULMONARY DISEASE
     Dosage: 250MCG TWICE PER DAY
     Route: 055
     Dates: end: 20101001
  2. PIASCLEDINE [Suspect]
     Dosage: 300MG PER DAY
     Route: 048
     Dates: start: 20100603, end: 20100927
  3. METFORMIN HCL [Suspect]
     Dosage: 500MG THREE TIMES PER DAY
     Route: 048
     Dates: end: 20101001
  4. CRESTOR [Suspect]
     Dosage: 5MG PER DAY
     Route: 048
     Dates: end: 20101001
  5. PREVISCAN [Suspect]
     Indication: PHLEBITIS
     Dosage: 25MG PER DAY
     Route: 048
     Dates: end: 20101006
  6. FUCIDINE [Suspect]
     Indication: DERMATOSIS
     Route: 061
     Dates: start: 20100909, end: 20101001
  7. ZOFENOPRIL [Suspect]
     Dosage: 30MG PER DAY
     Route: 048
     Dates: end: 20101001
  8. MOCLAMINE [Suspect]
     Dosage: 150MG THREE TIMES PER DAY
     Route: 048
     Dates: end: 20101001
  9. DAFALGAN [Suspect]
     Indication: PRODUCT USED FOR UNKNOWN INDICATION
     Dosage: 2G PER DAY
     Route: 048
     Dates: end: 20101001
  10. ZANEDIP [Suspect]
     Dosage: 10MG PER DAY
     Route: 048
     Dates: end: 20101001
  11. LANTUS [Concomitant]
     Dosage: 64UNIT PER DAY
  12. NOVONORM [Concomitant]
     Dosage: 2MG THREE TIMES PER DAY
  13. ADANCOR [Concomitant]
  14. FORLAX [Concomitant]
     Dosage: 2SAC PER DAY
     Route: 048

REACTIONS (8)
  - GENERAL PHYSICAL HEALTH DETERIORATION [None]
  - HEPATIC FIBROSIS [None]
  - HEPATIC NECROSIS [None]
  - HEPATIC STEATOSIS [None]
  - HEPATITIS [None]
  - JAUNDICE [None]
  - MIXED LIVER INJURY [None]
  - WEIGHT DECREASED [None]
